FAERS Safety Report 22134719 (Version 1)
Quarter: 2023Q1

REPORT INFORMATION
  Report Type: Spontaneous
  Country: JP (occurrence: JP)
  Receive Date: 20230324
  Receipt Date: 20230324
  Transmission Date: 20230417
  Serious: Yes (Hospitalization, Other)
  Sender: FDA-Public Use
  Company Number: JP-GSKNCCC-Case-01695579_AE-68823

PATIENT

DRUGS (1)
  1. FLUTICASONE FUROATE\VILANTEROL TRIFENATATE [Suspect]
     Active Substance: FLUTICASONE FUROATE\VILANTEROL TRIFENATATE
     Indication: Asthma
     Dosage: 100 ?G

REACTIONS (7)
  - Dyspnoea [Unknown]
  - Sense of oppression [Unknown]
  - Haematemesis [Unknown]
  - Pneumonia [Recovered/Resolved]
  - Cough [Recovered/Resolved]
  - Nasopharyngitis [Unknown]
  - Emphysema [Unknown]

NARRATIVE: CASE EVENT DATE: 20221206
